FAERS Safety Report 18294330 (Version 1)
Quarter: 2020Q3

REPORT INFORMATION
  Report Type: Spontaneous
  Country: US (occurrence: US)
  Receive Date: 20200921
  Receipt Date: 20200921
  Transmission Date: 20201103
  Serious: Yes (Hospitalization)
  Sender: FDA-Public Use
  Company Number: None

PATIENT
  Age: 51 Year
  Sex: Male

DRUGS (6)
  1. ATORVASTATIN [Concomitant]
     Active Substance: ATORVASTATIN
  2. PRALUENT [Suspect]
     Active Substance: ALIROCUMAB
     Route: 058
     Dates: start: 20200218
  3. OXYCODONE [Concomitant]
     Active Substance: OXYCODONE
  4. LOSARTAN. [Concomitant]
     Active Substance: LOSARTAN
  5. CLOPIDOGREL [Concomitant]
     Active Substance: CLOPIDOGREL BISULFATE
  6. BRILINTA [Suspect]
     Active Substance: TICAGRELOR

REACTIONS (1)
  - Hip surgery [None]

NARRATIVE: CASE EVENT DATE: 20200908
